FAERS Safety Report 4464892-2 (Version None)
Quarter: 2004Q3

REPORT INFORMATION
  Report Type: 
  Country: None (occurrence: None)
  Receive Date: 20040929
  Receipt Date: 20040909
  Transmission Date: 20050211
  Serious: Yes (Hospitalization, Other)
  Sender: FDA-Public Use
  Company Number: USA030536378

PATIENT
  Age: 80 Year
  Sex: Female

DRUGS (11)
  1. EVISTA [Suspect]
     Indication: OSTEOPOROSIS
     Dosage: 60 MG/D
     Dates: start: 19980101, end: 20040101
  2. FORTEO [Suspect]
     Dosage: 20 UG/1 DAY
     Dates: start: 20040804
  3. ANTIHYPERTENSIVE [Concomitant]
  4. ZOLOFT [Concomitant]
  5. MILD DIURETIC [Concomitant]
  6. CALCIUM [Concomitant]
  7. FOSAMAX [Concomitant]
  8. ACTONEL [Concomitant]
  9. MIACALCIN [Concomitant]
  10. VITAMIN D [Concomitant]
  11. CALCITONIN [Concomitant]

REACTIONS (13)
  - BONE DENSITY DECREASED [None]
  - DECREASED APPETITE [None]
  - DRUG INEFFECTIVE [None]
  - DYSPHAGIA [None]
  - HEADACHE [None]
  - HIP FRACTURE [None]
  - LOWER LIMB DEFORMITY [None]
  - MUSCLE CRAMP [None]
  - NAUSEA [None]
  - NIGHT CRAMPS [None]
  - OESOPHAGEAL STENOSIS [None]
  - PHARMACEUTICAL PRODUCT COMPLAINT [None]
  - WEIGHT DECREASED [None]
